FAERS Safety Report 8295053-7 (Version None)
Quarter: 2012Q2

REPORT INFORMATION
  Report Type: 
  Country: None (occurrence: None)
  Receive Date: 20120416
  Receipt Date: 20120402
  Transmission Date: 20120825
  Serious: Yes (Other)
  Sender: FDA-Public Use
  Company Number: 2012P1011780

PATIENT
  Age: 42 Year
  Sex: Male

DRUGS (12)
  1. LYRICA [Concomitant]
  2. KLONOPIN [Concomitant]
  3. SUSTIVA [Concomitant]
  4. TRUVADA [Concomitant]
  5. SEROQUEL [Concomitant]
  6. TRAMADOL HCL [Concomitant]
  7. MOTRIN [Concomitant]
  8. FENTANYL-50 [Suspect]
     Indication: PAIN
     Dosage: 1 PATCH;Q72H;TDER
     Route: 062
     Dates: start: 20120327, end: 20120401
  9. TEMAZEPAM [Concomitant]
  10. TESTOSTERONE INJECTION [Concomitant]
  11. ARICEPT [Concomitant]
  12. SOMA [Concomitant]

REACTIONS (17)
  - FALL [None]
  - CATATONIA [None]
  - ACTIVITIES OF DAILY LIVING IMPAIRED [None]
  - NEUROPATHY PERIPHERAL [None]
  - NIGHT SWEATS [None]
  - PRURITUS GENERALISED [None]
  - HALLUCINATIONS, MIXED [None]
  - MOVEMENT DISORDER [None]
  - FATIGUE [None]
  - HYPOAESTHESIA [None]
  - HYPERSOMNIA [None]
  - FEELING ABNORMAL [None]
  - HYPOVENTILATION [None]
  - HEART RATE DECREASED [None]
  - SOMNOLENCE [None]
  - DYSPNOEA [None]
  - CONDITION AGGRAVATED [None]
